FAERS Safety Report 6111198-1 (Version None)
Quarter: 2009Q1

REPORT INFORMATION
  Report Type: 
  Country: None (occurrence: None)
  Receive Date: 20090309
  Receipt Date: 20090303
  Transmission Date: 20090719
  Serious: Yes (Life-Threatening, Hospitalization)
  Sender: FDA-Public Use
  Company Number: GXKR2009DE02521

PATIENT
  Age: 77 Year
  Sex: Male
  Weight: 80 kg

DRUGS (14)
  1. ASPIRIN [Suspect]
     Indication: CORONARY ARTERY DISEASE
     Dosage: 100 MG, 1 IN DAY, ORAL
     Route: 048
     Dates: end: 20080306
  2. SIMVASTATIN (NGX) (SIMVASTATIN) FILM-COATED TABLET [Suspect]
     Indication: HYPERLIPIDAEMIA
     Dosage: 20MG, 1 IN DAY, ORAL
     Route: 048
     Dates: end: 20080306
  3. PREDNISOLONE (NGX) (PREDNISOLONE) TABLET [Suspect]
     Indication: IDIOPATHIC THROMBOCYTOPENIC PURPURA
     Dosage: 5 MG, 1 IN DAY, ORAL
     Route: 048
  4. FALITHROM (NGX) (PHENPROCOUMON) FILM-COATED TABLET [Suspect]
     Indication: ATRIAL FLUTTER
     Dosage: ORAL
     Route: 048
     Dates: end: 20080306
  5. SPIRONOLACTONE [Concomitant]
  6. PANTOPRAZOLE SODIUM [Concomitant]
  7. MOLSIDOMINE (MOLSIDOMINE) [Concomitant]
  8. MAGALDRATE (MAGALDRATE) [Concomitant]
  9. ISOSORBIDE MONONITRATE [Concomitant]
  10. HYDROCHLOROTHIAZIDE [Concomitant]
  11. DIGITOXIN INJ [Concomitant]
  12. BISOPROLOL (BISOPROLOL) [Concomitant]
  13. ALLOPURINOL [Concomitant]
  14. ACTRAPID PENFILL (INSULIN HUMAN) [Concomitant]

REACTIONS (3)
  - DRUG INTERACTION [None]
  - GASTRITIS EROSIVE [None]
  - GASTROINTESTINAL HAEMORRHAGE [None]
